FAERS Safety Report 18364488 (Version 1)
Quarter: 2020Q4

REPORT INFORMATION
  Report Type: Spontaneous
  Country: FR (occurrence: FR)
  Receive Date: 20201009
  Receipt Date: 20201009
  Transmission Date: 20210114
  Serious: Yes (Hospitalization)
  Sender: FDA-Public Use
  Company Number: FR-TEVA-2020-FR-1836019

PATIENT
  Age: 69 Year
  Sex: Female

DRUGS (2)
  1. TADALAFIL. [Suspect]
     Active Substance: TADALAFIL
     Indication: PULMONARY HYPERTENSION
     Dosage: 40MG
     Route: 048
     Dates: start: 202002
  2. BOSENTAN BASE [Suspect]
     Active Substance: BOSENTAN
     Indication: PULMONARY HYPERTENSION
     Dosage: 250MG
     Route: 048
     Dates: start: 202002

REACTIONS (4)
  - Dyspepsia [Not Recovered/Not Resolved]
  - Palpitations [Not Recovered/Not Resolved]
  - Macular oedema [Not Recovered/Not Resolved]
  - Dyschromatopsia [Not Recovered/Not Resolved]

NARRATIVE: CASE EVENT DATE: 202004
